FAERS Safety Report 7628600-6 (Version None)
Quarter: 2011Q3

REPORT INFORMATION
  Report Type: 
  Country: None (occurrence: None)
  Receive Date: 20110722
  Receipt Date: 20110712
  Transmission Date: 20111222
  Serious: Yes (Other)
  Sender: FDA-Public Use
  Company Number: US-JNJFOC-20110705658

PATIENT
  Age: 11 Year
  Sex: Female

DRUGS (2)
  1. INFLIXIMAB, RECOMBINANT [Suspect]
     Indication: GASTROINTESTINAL INFLAMMATION
     Dosage: 2 MONTHS OF THERAPY, NUMBER OF INFUSIONS NOT SPECIFIED
     Route: 042
  2. ADALIMUMAB [Suspect]
     Indication: GASTROINTESTINAL INFLAMMATION
     Dosage: 5 MONTHS OF THERAPY, NUMBER OF TREATMENTS NOT SPECIFIED

REACTIONS (2)
  - MYCOBACTERIUM AVIUM COMPLEX INFECTION [None]
  - LYMPHADENOPATHY [None]
